FAERS Safety Report 10683008 (Version 1)
Quarter: 2014Q4

REPORT INFORMATION
  Report Type: Spontaneous
  Country: US (occurrence: None)
  Receive Date: 20141229
  Receipt Date: 20141229
  Transmission Date: 20150529
  Serious: Yes (Hospitalization)
  Sender: FDA-Public Use
  Company Number: None

PATIENT
  Age: 20 Year
  Sex: Female
  Weight: 70.31 kg

DRUGS (5)
  1. LAMICTAL [Suspect]
     Active Substance: LAMOTRIGINE
     Indication: ANXIETY
     Route: 048
  2. MUSCLE RELAXANTS [Concomitant]
     Active Substance: UNSPECIFIED INGREDIENT
  3. LAMICTAL [Suspect]
     Active Substance: LAMOTRIGINE
     Indication: DEPRESSION
     Route: 048
  4. KLONOPIN [Concomitant]
     Active Substance: CLONAZEPAM
  5. OPIOIDS [Concomitant]
     Active Substance: UNSPECIFIED INGREDIENT

REACTIONS (6)
  - Paraesthesia [None]
  - Hypersomnia [None]
  - Dizziness [None]
  - Back pain [None]
  - Acute kidney injury [None]
  - Hypoaesthesia [None]

NARRATIVE: CASE EVENT DATE: 20141007
